FAERS Safety Report 19452447 (Version 1)
Quarter: 2021Q2

REPORT INFORMATION
  Report Type: Spontaneous
  Country: US (occurrence: US)
  Receive Date: 20210623
  Receipt Date: 20210623
  Transmission Date: 20210717
  Serious: No
  Sender: FDA-Public Use
  Company Number: US-UNITED THERAPEUTICS-UNT-2021-011458

PATIENT
  Sex: Female
  Weight: 71.2 kg

DRUGS (4)
  1. OPSUMIT [Concomitant]
     Active Substance: MACITENTAN
     Indication: PRODUCT USED FOR UNKNOWN INDICATION
     Dosage: UNK
     Route: 065
  2. ORENITRAM [Suspect]
     Active Substance: TREPROSTINIL
     Indication: PULMONARY ARTERIAL HYPERTENSION
     Dosage: UNK
     Route: 048
  3. ORENITRAM [Suspect]
     Active Substance: TREPROSTINIL
     Indication: PULMONARY ARTERIAL HYPERTENSION
     Dosage: UNK
     Route: 048
     Dates: start: 20210212
  4. ORENITRAM [Suspect]
     Active Substance: TREPROSTINIL
     Dosage: 5 MG, Q8H
     Route: 048

REACTIONS (8)
  - Diarrhoea [Recovering/Resolving]
  - Palpitations [Not Recovered/Not Resolved]
  - Nasal congestion [Unknown]
  - Heart rate irregular [Unknown]
  - Weight increased [Unknown]
  - Headache [Unknown]
  - Abdominal pain upper [Unknown]
  - Presyncope [Unknown]

NARRATIVE: CASE EVENT DATE: 2021
